FAERS Safety Report 18818490 (Version 1)
Quarter: 2021Q1

REPORT INFORMATION
  Report Type: Spontaneous
  Country: US (occurrence: US)
  Receive Date: 20210202
  Receipt Date: 20210202
  Transmission Date: 20210419
  Serious: No
  Sender: FDA-Public Use
  Company Number: US-SA-2021SA027774

PATIENT
  Age: 65 Year
  Sex: Female

DRUGS (4)
  1. PAXIL [Concomitant]
     Active Substance: PAROXETINE HYDROCHLORIDE
  2. OXYBUTYNIN. [Concomitant]
     Active Substance: OXYBUTYNIN CHLORIDE
  3. AUBAGIO [Suspect]
     Active Substance: TERIFLUNOMIDE
     Indication: PRODUCT USED FOR UNKNOWN INDICATION
     Dosage: 14 MG, QD
     Route: 048
     Dates: end: 202012
  4. XANAX [Concomitant]
     Active Substance: ALPRAZOLAM

REACTIONS (1)
  - Malaise [Unknown]

NARRATIVE: CASE EVENT DATE: 202012
